FAERS Safety Report 8177931-2 (Version None)
Quarter: 2012Q1

REPORT INFORMATION
  Report Type: 
  Country: None (occurrence: None)
  Receive Date: 20120130
  Receipt Date: 20110425
  Transmission Date: 20120608
  Serious: Yes (Disabling, Other)
  Sender: FDA-Public Use
  Company Number: 031580

PATIENT
  Age: 55 Year
  Sex: Female
  Weight: 71 kg

DRUGS (11)
  1. VITAMIN B12 /00056201/ [Concomitant]
  2. LEVOTHYROXINE SODIUM [Concomitant]
  3. VALIUM [Concomitant]
  4. LAMOTRIGINE [Concomitant]
  5. SINGULAIR /01322601/ [Concomitant]
  6. PLAVIX [Concomitant]
  7. LEVETIRACETAM [Suspect]
     Indication: CONVULSION
     Dosage: (200 MG ORAL) ; (300 MG ORAL) ; (400 MG ORAL)
     Route: 048
     Dates: start: 20081116, end: 20081116
  8. LEVETIRACETAM [Suspect]
     Indication: COMPLEX PARTIAL SEIZURES
     Dosage: (200 MG ORAL) ; (300 MG ORAL) ; (400 MG ORAL)
     Route: 048
     Dates: start: 20081116, end: 20081116
  9. LEVETIRACETAM [Suspect]
     Indication: CONVULSION
     Dosage: (200 MG ORAL) ; (300 MG ORAL) ; (400 MG ORAL)
     Route: 048
     Dates: start: 20081117
  10. LEVETIRACETAM [Suspect]
     Indication: COMPLEX PARTIAL SEIZURES
     Dosage: (200 MG ORAL) ; (300 MG ORAL) ; (400 MG ORAL)
     Route: 048
     Dates: start: 20081117
  11. CELEXA [Concomitant]

REACTIONS (2)
  - DRUG INEFFECTIVE [None]
  - CONFUSIONAL STATE [None]
